FAERS Safety Report 20903316 (Version 1)
Quarter: 2022Q2

REPORT INFORMATION
  Report Type: Other
  Country: US (occurrence: None)
  Receive Date: 20220601
  Receipt Date: 20220601
  Transmission Date: 20220721
  Serious: Yes (Other)
  Sender: FDA-Public Use
  Company Number: US-ROCHE-3106575

PATIENT
  Sex: Male
  Weight: 108.51 kg

DRUGS (9)
  1. OCREVUS [Suspect]
     Active Substance: OCRELIZUMAB
     Indication: Multiple sclerosis
     Route: 042
  2. ACETAMINOPHEN [Concomitant]
     Active Substance: ACETAMINOPHEN
  3. ALLOPURINOL [Concomitant]
     Active Substance: ALLOPURINOL
  4. ATORVASTATIN [Concomitant]
     Active Substance: ATORVASTATIN
  5. CIPROFLOXACIN [Concomitant]
     Active Substance: CIPROFLOXACIN
  6. CRANBERRY [Concomitant]
     Active Substance: CRANBERRY
  7. DIPHENHYDRAMINE [Concomitant]
     Active Substance: DIPHENHYDRAMINE
  8. OXYBUTYNIN [Concomitant]
     Active Substance: OXYBUTYNIN
  9. PANTOPRAZOLE [Concomitant]
     Active Substance: PANTOPRAZOLE

REACTIONS (17)
  - Neurogenic bladder [Unknown]
  - Urinary tract infection [Unknown]
  - Abscess neck [Unknown]
  - Conjunctivitis allergic [Unknown]
  - Movement disorder [Unknown]
  - Balance disorder [Unknown]
  - Depression [Unknown]
  - Blood alkaline phosphatase increased [Unknown]
  - Erectile dysfunction [Unknown]
  - Gastrooesophageal reflux disease [Unknown]
  - Gout [Unknown]
  - Hyperlipidaemia [Unknown]
  - Infected dermal cyst [Unknown]
  - Insomnia [Unknown]
  - Nephrolithiasis [Unknown]
  - Muscle spasms [Unknown]
  - Bladder catheterisation [Unknown]
